FAERS Safety Report 21747126 (Version 1)
Quarter: 2022Q4

REPORT INFORMATION
  Report Type: Report from Study
  Country: US (occurrence: None)
  Receive Date: 20221219
  Receipt Date: 20221219
  Transmission Date: 20230112
  Serious: Yes (Hospitalization)
  Sender: FDA-Public Use
  Company Number: US-ROCHE-3238885

PATIENT
  Sex: Female

DRUGS (2)
  1. ATEZOLIZUMAB [Suspect]
     Active Substance: ATEZOLIZUMAB
     Indication: Cholangiocarcinoma
     Dosage: ON 25/SEP/2018, MOST RECENT DOSE OF ATEZOLIZUMAB PRIOR TO AE WAS ADMINISTERED.
     Route: 041
     Dates: start: 20180605
  2. COBIMETINIB [Suspect]
     Active Substance: COBIMETINIB
     Indication: Cholangiocarcinoma
     Dosage: ON 25/SEP/2018 AND 01/OCT/2018, MOST RECENT DOSE OF COBIMETINIB PRIOR TO AE WAS ADMINISTERED.
     Route: 048
     Dates: start: 20180605

REACTIONS (1)
  - Facial paralysis [Unknown]
